FAERS Safety Report 19941176 (Version 1)
Quarter: 2021Q4

REPORT INFORMATION
  Report Type: Report from Study
  Country: US (occurrence: US)
  Receive Date: 20211011
  Receipt Date: 20211011
  Transmission Date: 20220303
  Serious: Yes (Other)
  Sender: FDA-Public Use
  Company Number: US-JAZZ-2021-US-004795

PATIENT
  Age: 33 Year
  Sex: Female

DRUGS (6)
  1. SOLRIAMFETOL [Suspect]
     Active Substance: SOLRIAMFETOL
     Indication: Narcolepsy
     Dosage: UNKNOWN DOSE AND FREQUENCY
     Route: 048
     Dates: end: 2019
  2. SOLRIAMFETOL [Suspect]
     Active Substance: SOLRIAMFETOL
     Dosage: 150 MILLIGRAM
     Route: 048
     Dates: start: 2019
  3. NP THYROID [Concomitant]
     Active Substance: LEVOTHYROXINE\LIOTHYRONINE
     Indication: Hypothyroidism
     Dosage: 60 MILLIGRAM, QD
     Route: 048
  4. LABETALOL [Concomitant]
     Active Substance: LABETALOL\LABETALOL HYDROCHLORIDE
     Indication: Product used for unknown indication
     Dosage: 50 MILLIGRAM, BID
     Route: 048
  5. SUMATRIPTAN [Concomitant]
     Active Substance: SUMATRIPTAN
     Indication: Migraine
     Dosage: 100 MILLIGRAM
     Route: 048
  6. GLYCOPYRRONIUM [Concomitant]
     Active Substance: GLYCOPYRRONIUM
     Indication: Product used for unknown indication
     Dosage: 2 MILLIGRAM
     Route: 048

REACTIONS (2)
  - Placenta praevia [Recovered/Resolved]
  - Exposure during pregnancy [Unknown]

NARRATIVE: CASE EVENT DATE: 20201201
